FAERS Safety Report 16474462 (Version 1)
Quarter: 2019Q3

REPORT INFORMATION
  Report Type: Spontaneous
  Country: US (occurrence: US)
  Receive Date: 20190624
  Receipt Date: 20190624
  Transmission Date: 20191004
  Serious: Yes (Other)
  Sender: FDA-Public Use
  Company Number: None

PATIENT
  Age: 78 Year
  Sex: Male
  Weight: 67.5 kg

DRUGS (9)
  1. LIBTAYO [Suspect]
     Active Substance: CEMIPLIMAB-RWLC
     Indication: SCROTAL CANCER
     Dosage: ?          OTHER FREQUENCY:Q21 DAYS;?
     Route: 042
     Dates: start: 20181106
  2. ALEVE [Concomitant]
     Active Substance: NAPROXEN SODIUM
  3. NEULASTA [Concomitant]
     Active Substance: PEGFILGRASTIM
  4. PROMETHAZINE [Concomitant]
     Active Substance: PROMETHAZINE HYDROCHLORIDE
  5. ASPIRIN. [Concomitant]
     Active Substance: ASPIRIN
  6. SILDENAFIL. [Concomitant]
     Active Substance: SILDENAFIL
  7. PROCRIT [Concomitant]
     Active Substance: ERYTHROPOIETIN
  8. CENTRUM [Concomitant]
     Active Substance: VITAMINS
  9. NORCO [Concomitant]
     Active Substance: ACETAMINOPHEN\HYDROCODONE BITARTRATE

REACTIONS (1)
  - Disease progression [None]
